FAERS Safety Report 19772612 (Version 1)
Quarter: 2021Q3

REPORT INFORMATION
  Report Type: Spontaneous
  Country: IN (occurrence: IN)
  Receive Date: 20210901
  Receipt Date: 20210901
  Transmission Date: 20211014
  Serious: Yes (Death)
  Sender: FDA-Public Use
  Company Number: IN-PFIZER INC-2018528982

PATIENT
  Age: 65 Year
  Sex: Female

DRUGS (6)
  1. PALBACE [Suspect]
     Active Substance: PALBOCICLIB
     Indication: BREAST CANCER METASTATIC
     Dosage: 125 MG, CYCLIC (ONCE A DAY, EVERY 21/30 DAY)
     Route: 048
     Dates: start: 20180308
  2. PALBACE [Suspect]
     Active Substance: PALBOCICLIB
     Dosage: 100 MG, CYCLIC (1 CAPSULE FOR 21 DAYS IN A MONTH (FOR 3 MONTHS))
  3. ZOLDRIA [Concomitant]
     Active Substance: ZOLEDRONIC ACID
     Dosage: 4 MG
     Route: 042
     Dates: start: 201803
  4. FASLODEX [Concomitant]
     Active Substance: FULVESTRANT
     Dosage: UNK
     Dates: start: 201803
  5. AROMASIN [Concomitant]
     Active Substance: EXEMESTANE
     Dosage: UNK
  6. FEMARA [Concomitant]
     Active Substance: LETROZOLE
     Dosage: UNK , DAILY
     Dates: start: 201803

REACTIONS (9)
  - Product use issue [Unknown]
  - Endometrial thickening [Unknown]
  - White blood cell count decreased [Unknown]
  - Platelet count increased [Unknown]
  - Haemoglobin decreased [Unknown]
  - Off label use [Unknown]
  - Neoplasm progression [Unknown]
  - Death [Fatal]
  - Chest pain [Not Recovered/Not Resolved]

NARRATIVE: CASE EVENT DATE: 20200605
